FAERS Safety Report 22164930 (Version 1)
Quarter: 2023Q2

REPORT INFORMATION
  Report Type: Report from Study
  Country: None (occurrence: CN)
  Receive Date: 20230403
  Receipt Date: 20230403
  Transmission Date: 20230721
  Serious: Yes (Hospitalization)
  Sender: FDA-Public Use
  Company Number: CN-Jiangsu Hengrui Medicine Co., Ltd.-2139820

PATIENT
  Age: 64 Year
  Sex: Female
  Weight: 56 kg

DRUGS (6)
  1. LETROZOLE [Suspect]
     Active Substance: LETROZOLE
     Indication: Breast cancer
     Route: 048
     Dates: start: 20220121
  2. INVESTIGATIONAL PRODUCT [Suspect]
     Active Substance: INVESTIGATIONAL PRODUCT
     Route: 048
     Dates: start: 20220121, end: 20221216
  3. TAMOXIFEN CITRATE [Suspect]
     Active Substance: TAMOXIFEN CITRATE
  4. TOREMIFENE CITRATE [Suspect]
     Active Substance: TOREMIFENE CITRATE
  5. ANASTROZOLE [Suspect]
     Active Substance: ANASTROZOLE
  6. Insulin Aspart 30 Injection [Concomitant]
     Route: 058

REACTIONS (1)
  - Gamma-glutamyltransferase increased [Not Recovered/Not Resolved]

NARRATIVE: CASE EVENT DATE: 20230111
